FAERS Safety Report 18885051 (Version 1)
Quarter: 2021Q1

REPORT INFORMATION
  Report Type: Spontaneous
  Country: US (occurrence: US)
  Receive Date: 20210212
  Receipt Date: 20210212
  Transmission Date: 20210420
  Serious: Yes (Other)
  Sender: FDA-Public Use
  Company Number: None

PATIENT
  Age: 35 Year
  Sex: Female
  Weight: 67.5 kg

DRUGS (6)
  1. PRAZOSIN. [Concomitant]
     Active Substance: PRAZOSIN
  2. AZITHROMYCIN ANHYDROUS. [Concomitant]
     Active Substance: AZITHROMYCIN ANHYDROUS
  3. ENBREL [Suspect]
     Active Substance: ETANERCEPT
     Indication: PSORIATIC ARTHROPATHY
     Dosage: ?          QUANTITY:1 INJECTION(S);OTHER FREQUENCY:WEEKLY;OTHER ROUTE:SC INJECTION?
     Route: 058
     Dates: start: 20210126, end: 20210209
  4. TRAMADOL. [Concomitant]
     Active Substance: TRAMADOL
  5. BIRTH CONTROL PILLS [Concomitant]
     Active Substance: UNSPECIFIED INGREDIENT
  6. AMBIEN [Concomitant]
     Active Substance: ZOLPIDEM TARTRATE

REACTIONS (4)
  - Tachycardia [None]
  - Influenza virus test positive [None]
  - Dyspnoea [None]
  - Decreased appetite [None]

NARRATIVE: CASE EVENT DATE: 20210209
